FAERS Safety Report 5342166-5 (Version None)
Quarter: 2007Q2

REPORT INFORMATION
  Report Type: 
  Country: None (occurrence: None)
  Receive Date: 20070601
  Receipt Date: 20070530
  Transmission Date: 20071010
  Serious: Yes (Other)
  Sender: FDA-Public Use
  Company Number: A0653730A

PATIENT
  Age: 28 Year
  Sex: Female

DRUGS (4)
  1. PAXIL [Suspect]
     Indication: DEPRESSION
     Route: 065
  2. TOPAMAX [Suspect]
     Indication: DEPRESSION
     Dosage: 200MG PER DAY
     Route: 065
  3. ESTRADIOL AND NORGESTIMATE [Suspect]
     Indication: CONTRACEPTION
     Route: 065
  4. NO CONCURRENT MEDICATIONS [Concomitant]

REACTIONS (4)
  - ABORTION SPONTANEOUS [None]
  - DRUG EXPOSURE DURING PREGNANCY [None]
  - DRUG INTERACTION [None]
  - UNINTENDED PREGNANCY [None]
